FAERS Safety Report 8570054-X (Version None)
Quarter: 2012Q3

REPORT INFORMATION
  Report Type: 
  Country: None (occurrence: None)
  Receive Date: 20120803
  Receipt Date: 20120726
  Transmission Date: 20120928
  Serious: Yes (Life-Threatening, Hospitalization, Other)
  Sender: FDA-Public Use
  Company Number: US-ABBOTT-11P-163-0729961-00

PATIENT
  Sex: Male

DRUGS (3)
  1. HUMIRA [Suspect]
     Indication: PSORIASIS
     Route: 058
     Dates: start: 20080924, end: 20080924
  2. HUMIRA [Suspect]
     Route: 058
     Dates: start: 20110119, end: 20110401
  3. LANTUS [Concomitant]
     Indication: DIABETES MELLITUS
     Dates: start: 20060101

REACTIONS (1)
  - OESOPHAGEAL CARCINOMA [None]
